FAERS Safety Report 8193007-2 (Version None)
Quarter: 2012Q1

REPORT INFORMATION
  Report Type: 
  Country: None (occurrence: None)
  Receive Date: 20120308
  Receipt Date: 20120301
  Transmission Date: 20120608
  Serious: Yes (Hospitalization)
  Sender: FDA-Public Use
  Company Number: US-BAYER-2012-011688

PATIENT
  Age: 37 Year
  Sex: Female
  Weight: 54.875 kg

DRUGS (1)
  1. BEYAZ [Suspect]

REACTIONS (1)
  - HAEMATOMA [None]
